FAERS Safety Report 11478509 (Version 1)
Quarter: 2015Q3

REPORT INFORMATION
  Report Type: Spontaneous
  Country: US (occurrence: US)
  Receive Date: 20150909
  Receipt Date: 20150909
  Transmission Date: 20151125
  Serious: No
  Sender: FDA-Public Use
  Company Number: US-JAZZ-2015-US-003052

PATIENT

DRUGS (1)
  1. XYREM [Suspect]
     Active Substance: SODIUM OXYBATE
     Indication: HEMIPLEGIA
     Dosage: UNKNOWN DOSE

REACTIONS (5)
  - Product use issue [Unknown]
  - Oxygen saturation decreased [Unknown]
  - Abnormal behaviour [Unknown]
  - Dyspnoea [Unknown]
  - Hypersomnia [Unknown]
